FAERS Safety Report 6086945-8 (Version None)
Quarter: 2009Q1

REPORT INFORMATION
  Report Type: 
  Country: None (occurrence: None)
  Receive Date: 20090223
  Receipt Date: 20090212
  Transmission Date: 20090719
  Serious: Yes (Other)
  Sender: FDA-Public Use
  Company Number: US-ROCHE-611782

PATIENT
  Sex: Female

DRUGS (2)
  1. MYCOPHENOLATE MOFETIL [Suspect]
     Indication: DRUG USE FOR UNKNOWN INDICATION
     Route: 065
  2. MYCOPHENOLATE MOFETIL [Suspect]
     Dosage: DOSAGE LOWERED
     Route: 065

REACTIONS (3)
  - DEMENTIA [None]
  - MALAISE [None]
  - WEIGHT DECREASED [None]
